FAERS Safety Report 4795866-X (Version None)
Quarter: 2005Q4

REPORT INFORMATION
  Report Type: 
  Country: None (occurrence: None)
  Receive Date: 20051012
  Receipt Date: 20050922
  Transmission Date: 20060501
  Serious: Yes (Hospitalization, Other)
  Sender: FDA-Public Use
  Company Number: MX-ABBOTT-05P-107-0311815-01

PATIENT
  Sex: Male
  Weight: 57.1 kg

DRUGS (4)
  1. KALETRA [Suspect]
     Indication: HIV TEST POSITIVE
     Route: 048
     Dates: start: 20040226
  2. KALETRA [Suspect]
     Route: 048
  3. FLUCONAZOLE [Concomitant]
     Indication: ORAL CANDIDIASIS
     Route: 048
  4. NYSTATIN [Concomitant]
     Indication: ORAL CANDIDIASIS
     Route: 048

REACTIONS (3)
  - ANAEMIA [None]
  - BONE MARROW FAILURE [None]
  - ORAL CANDIDIASIS [None]
